FAERS Safety Report 19442714 (Version 1)
Quarter: 2021Q2

REPORT INFORMATION
  Report Type: Spontaneous
  Country: CA (occurrence: CA)
  Receive Date: 20210621
  Receipt Date: 20210621
  Transmission Date: 20210717
  Serious: Yes (Hospitalization)
  Sender: FDA-Public Use
  Company Number: NVSC2021CA137161

PATIENT
  Age: 85 Year
  Sex: Male
  Weight: 84 kg

DRUGS (3)
  1. PIPERACILLIN SODIUM/TAZOBACTAM SODIUM POWDER FOR INJECTION [Suspect]
     Active Substance: PIPERACILLIN SODIUM\TAZOBACTAM SODIUM
     Indication: PYREXIA
     Dosage: 3375 G, Q6H
     Route: 041
  2. PIPERACILLIN SODIUM/TAZOBACTAM SODIUM POWDER FOR INJECTION [Suspect]
     Active Substance: PIPERACILLIN SODIUM\TAZOBACTAM SODIUM
     Indication: ABDOMINAL PAIN
  3. SANDOZ AMOXI?CLAV [Suspect]
     Active Substance: AMOXICILLIN\CLAVULANIC ACID
     Indication: PYREXIA
     Dosage: 1 DF, BID
     Route: 065

REACTIONS (8)
  - Vomiting [Unknown]
  - Diarrhoea [Unknown]
  - Asthenia [Unknown]
  - Presyncope [Unknown]
  - Nausea [Unknown]
  - Decreased appetite [Unknown]
  - Abdominal pain [Unknown]
  - Clostridium test positive [Unknown]
